FAERS Safety Report 9225588 (Version 1)
Quarter: 2013Q1

REPORT INFORMATION
  Report Type: Spontaneous
  Country: US (occurrence: None)
  Receive Date: 20120914
  Receipt Date: 20120914
  Transmission Date: 20140127
  Serious: Yes (Hospitalization)
  Sender: FDA-Public Use
  Company Number: JPI-P-017171

PATIENT
  Age: 19 Year
  Sex: Female

DRUGS (2)
  1. XYREM (500 MILLIGRAM/MILLILITERS, SOLUTION) (SODIUM OXYBATE) [Suspect]
     Indication: CATAPLEXY
     Route: 048
     Dates: start: 20110831, end: 2011
  2. NUVIGIL (ARMODAFINIL) [Concomitant]

REACTIONS (5)
  - Depression [None]
  - Condition aggravated [None]
  - Dizziness [None]
  - Loss of consciousness [None]
  - Memory impairment [None]
